FAERS Safety Report 6187174-X (Version None)
Quarter: 2009Q2

REPORT INFORMATION
  Report Type: 
  Country: None (occurrence: None)
  Receive Date: 20090507
  Receipt Date: 20090113
  Transmission Date: 20091009
  Serious: Yes (Hospitalization)
  Sender: FDA-Public Use
  Company Number: 607976

PATIENT
  Age: 54 Year
  Sex: Male
  Weight: 62.1 kg

DRUGS (2)
  1. NAPROSYN [Suspect]
     Indication: BACK PAIN
     Dosage: 500 MG 2 PER DAY ORAL
     Route: 048
     Dates: start: 20060101, end: 20080101
  2. PREDNISONE TAB [Concomitant]

REACTIONS (1)
  - GASTRIC ULCER PERFORATION [None]
